FAERS Safety Report 4515326-0 (Version None)
Quarter: 2004Q4

REPORT INFORMATION
  Report Type: 
  Country: None (occurrence: None)
  Receive Date: 20041126
  Receipt Date: 20041116
  Transmission Date: 20050328
  Serious: Yes (Life-Threatening, Hospitalization, Other)
  Sender: FDA-Public Use
  Company Number: HQWYE995722OCT04

PATIENT
  Age: 48 Year
  Sex: Male
  Weight: 86.26 kg

DRUGS (3)
  1. RAPAMUNE [Suspect]
     Indication: RENAL TRANSPLANT
     Dosage: ORAL
     Route: 048
     Dates: start: 20040902, end: 20041004
  2. PREDNISONE [Concomitant]
  3. PROGRAF [Concomitant]

REACTIONS (9)
  - DRUG LEVEL FLUCTUATING [None]
  - DRUG TOXICITY [None]
  - GLUCOSE TOLERANCE IMPAIRED [None]
  - HAEMODIALYSIS [None]
  - HAEMOPTYSIS [None]
  - JAUNDICE [None]
  - PNEUMONITIS [None]
  - RENAL FAILURE ACUTE [None]
  - THROMBOCYTOPENIA [None]
